FAERS Safety Report 9780152 (Version 3)
Quarter: 2014Q1

REPORT INFORMATION
  Report Type: Spontaneous
  Country: TW (occurrence: TW)
  Receive Date: 20131223
  Receipt Date: 20140114
  Transmission Date: 20141002
  Serious: Yes (Death, Hospitalization)
  Sender: FDA-Public Use
  Company Number: TW-ABBVIE-13P-153-1166750-00

PATIENT
  Sex: Female

DRUGS (2)
  1. HUMIRA [Suspect]
     Indication: RHEUMATOID ARTHRITIS
     Route: 058
     Dates: start: 20130712, end: 20131004
  2. ULTRACET [Concomitant]
     Indication: PRODUCT USED FOR UNKNOWN INDICATION
     Dosage: ACT 325 /TRAMADOL37.5
     Route: 048
     Dates: start: 20130716

REACTIONS (6)
  - Dyspnoea [Fatal]
  - Pneumonia [Fatal]
  - Pyrexia [Fatal]
  - Septic shock [Fatal]
  - Hypertension [Unknown]
  - Mitral valve incompetence [Unknown]
